FAERS Safety Report 7456510-6 (Version None)
Quarter: 2011Q2

REPORT INFORMATION
  Report Type: 
  Country: None (occurrence: None)
  Receive Date: 20110503
  Receipt Date: 20110421
  Transmission Date: 20111010
  Serious: Yes (Hospitalization)
  Sender: FDA-Public Use
  Company Number: PHHY2011CH35182

PATIENT
  Age: 7 Month
  Sex: Male
  Weight: 5.6 kg

DRUGS (11)
  1. POTASSIUM CHLORIDE [Concomitant]
     Dosage: 8 MMOL, UNK
     Route: 048
  2. DAFALGAN [Concomitant]
  3. ASPEGIC 325 [Concomitant]
     Dosage: 30 MG, UNK
     Route: 048
  4. ALBUMIN (HUMAN) [Concomitant]
     Dosage: 2 DF, UNK
     Route: 042
  5. GENTAMICIN [Concomitant]
     Dosage: 40 MG, UNK
     Route: 042
  6. SANDOSTATIN [Concomitant]
     Dosage: 5 UG/KG/H
     Dates: start: 20110414
  7. VANCOMYCIN [Concomitant]
     Dosage: 380 MG, UNK
     Route: 041
  8. SANDOSTATIN [Concomitant]
     Dosage: 2.5 UG/KG/H
     Dates: start: 20110412, end: 20110414
  9. SANDIMMUNE [Suspect]
     Dosage: 5 UG/KG/H CONTINUOUS DOSE, 0.28 MG CICLOSPORIN / 10 HOURS
     Dates: start: 20110414
  10. LASIX [Concomitant]
     Dosage: 24 MG, UNK
     Route: 048
  11. SPIRONOLACTONE [Concomitant]
     Dosage: 12.5 MG, UNK
     Route: 048

REACTIONS (2)
  - WRONG DRUG ADMINISTERED [None]
  - PYREXIA [None]
